FAERS Safety Report 6866775-7 (Version None)
Quarter: 2010Q3

REPORT INFORMATION
  Report Type: 
  Country: None (occurrence: None)
  Receive Date: 20100722
  Receipt Date: 20100709
  Transmission Date: 20110219
  Serious: Yes (Hospitalization, Disabling, Other)
  Sender: FDA-Public Use
  Company Number: PHHY2010US36030

PATIENT
  Sex: Female

DRUGS (17)
  1. FEMARA [Suspect]
     Indication: BREAST CANCER
     Dosage: 2.5 MG, QD
     Route: 048
     Dates: start: 20091101
  2. ALEVE (CAPLET) [Concomitant]
     Dosage: 220 MG
     Route: 048
  3. AMLODIPINE BESYLATE AND BENAZEPRIL HCL [Concomitant]
     Dosage: 10/20 MG, ONCE DAILY
     Route: 048
  4. BACITRACIN [Concomitant]
     Route: 061
  5. CALTRATE +D [Concomitant]
     Dosage: 600/400 MG, BID
     Route: 048
  6. CLARITIN-D [Concomitant]
     Dosage: PRN
     Route: 048
  7. COLACE [Concomitant]
     Dosage: 100 MG
  8. CVS NASAL SPRAY [Concomitant]
     Route: 045
  9. GABAPENTIN [Concomitant]
     Dosage: 300 MG, BID
     Route: 048
  10. HAIR PROSTHESIS [Concomitant]
  11. PEPCID AC [Concomitant]
     Dosage: 10 MG, PRN
     Route: 048
  12. PHENERGAN [Concomitant]
     Dosage: 25 MG
     Route: 048
  13. PHYSICAL THERAPY [Concomitant]
  14. TRAMADOL HCL [Concomitant]
     Dosage: 50 MG
     Route: 048
  15. TRIAMTERENE AND HYDROCHLOROTHIAZIDE [Concomitant]
     Dosage: 37.5/25 MG, QD
     Route: 048
  16. VYTORIN [Concomitant]
     Dosage: 10/20 MG, QD
  17. AVASTIN [Concomitant]
     Dosage: UNK
     Dates: start: 20090813, end: 20100303

REACTIONS (3)
  - HYPERBARIC OXYGEN THERAPY [None]
  - SURGERY [None]
  - WOUND DEHISCENCE [None]
